FAERS Safety Report 10936131 (Version 3)
Quarter: 2016Q3

REPORT INFORMATION
  Report Type: Spontaneous
  Country: PK (occurrence: PK)
  Receive Date: 20150320
  Receipt Date: 20160901
  Transmission Date: 20161109
  Serious: Yes (Death)
  Sender: FDA-Public Use
  Company Number: PK-GILEAD-2015-0143296

PATIENT
  Sex: Male

DRUGS (2)
  1. XOLOX                              /00816701/ [Suspect]
     Active Substance: RIBAVIRIN
     Indication: HEPATITIS C
     Route: 048
  2. SOVALDI [Suspect]
     Active Substance: SOFOSBUVIR
     Indication: HEPATITIS C
     Dosage: 400 MG, QD
     Route: 048
     Dates: start: 20150123

REACTIONS (2)
  - Bleeding varicose vein [Fatal]
  - Liver disorder [Fatal]
